FAERS Safety Report 7213140-9 (Version None)
Quarter: 2010Q4

REPORT INFORMATION
  Report Type: 
  Country: None (occurrence: None)
  Receive Date: 20101229
  Receipt Date: 20101215
  Transmission Date: 20110411
  Serious: Yes (Life-Threatening)
  Sender: FDA-Public Use
  Company Number: CTI_1285_2010

PATIENT
  Age: 12 Month
  Sex: Male

DRUGS (6)
  1. MEIACT (MEIACT MS (CEFDITOREN PIVOXIL)) (NOT SPECIFIED) [Suspect]
     Indication: INFECTION PROPHYLAXIS
     Dosage: (0.86 G ORAL), (0.86 G ORAL), (0.86 G ORAL), (0.9 G ORAL), (0.9 G ORAL)
     Route: 048
     Dates: start: 20101016, end: 20101019
  2. MEIACT (MEIACT MS (CEFDITOREN PIVOXIL)) (NOT SPECIFIED) [Suspect]
     Indication: INFECTION PROPHYLAXIS
     Dosage: (0.86 G ORAL), (0.86 G ORAL), (0.86 G ORAL), (0.9 G ORAL), (0.9 G ORAL)
     Route: 048
     Dates: start: 20101110, end: 20101114
  3. MEIACT (MEIACT MS (CEFDITOREN PIVOXIL)) (NOT SPECIFIED) [Suspect]
     Indication: INFECTION PROPHYLAXIS
     Dosage: (0.86 G ORAL), (0.86 G ORAL), (0.86 G ORAL), (0.9 G ORAL), (0.9 G ORAL)
     Route: 048
     Dates: start: 20101116, end: 20101118
  4. MEIACT (MEIACT MS (CEFDITOREN PIVOXIL)) (NOT SPECIFIED) [Suspect]
     Indication: INFECTION PROPHYLAXIS
     Dosage: (0.86 G ORAL), (0.86 G ORAL), (0.86 G ORAL), (0.9 G ORAL), (0.9 G ORAL)
     Route: 048
     Dates: start: 20101130, end: 20101204
  5. MEIACT (MEIACT MS (CEFDITOREN PIVOXIL)) (NOT SPECIFIED) [Suspect]
     Indication: INFECTION PROPHYLAXIS
     Dosage: (0.86 G ORAL), (0.86 G ORAL), (0.86 G ORAL), (0.9 G ORAL), (0.9 G ORAL)
     Route: 048
     Dates: start: 20101206, end: 20101208
  6. CLARITHROMYCIN [Concomitant]

REACTIONS (3)
  - CARNITINE DECREASED [None]
  - DECREASED APPETITE [None]
  - HYPOGLYCAEMIC UNCONSCIOUSNESS [None]
